FAERS Safety Report 10229829 (Version 2)
Quarter: 2014Q2

REPORT INFORMATION
  Report Type: Spontaneous
  Country: PL (occurrence: PL)
  Receive Date: 20140611
  Receipt Date: 20140624
  Transmission Date: 20141212
  Serious: Yes (Life-Threatening)
  Sender: FDA-Public Use
  Company Number: PL-TEVA-487383ISR

PATIENT
  Age: 17 Year
  Sex: Female
  Weight: 55 kg

DRUGS (3)
  1. BISOPROLOL [Suspect]
     Indication: SUICIDE ATTEMPT
     Dosage: 125MG
     Route: 048
  2. AMLODIPINE [Suspect]
     Indication: SUICIDE ATTEMPT
     Dosage: 600MG
     Route: 048
  3. CAPTOPRIL [Suspect]
     Indication: SUICIDE ATTEMPT
     Dosage: 875MG
     Route: 048

REACTIONS (7)
  - Cardiac failure acute [Recovered/Resolved]
  - Toxicity to various agents [Recovered/Resolved]
  - Multi-organ failure [Recovered/Resolved]
  - Suicide attempt [Recovered/Resolved]
  - Intentional overdose [Recovered/Resolved]
  - Hyperglycaemia [Recovering/Resolving]
  - Abdominal pain [Unknown]
